FAERS Safety Report 25750575 (Version 2)
Quarter: 2025Q3

REPORT INFORMATION
  Report Type: Spontaneous
  Country: US (occurrence: US)
  Receive Date: 20250902
  Receipt Date: 20250921
  Transmission Date: 20251021
  Serious: No
  Sender: SANOFI AVENTIS
  Company Number: US-SA-2025SA261469

PATIENT
  Age: 79 Year
  Sex: Female

DRUGS (1)
  1. DUPIXENT [Suspect]
     Active Substance: DUPILUMAB
     Dosage: 300 MG, QOW
     Route: 058

REACTIONS (9)
  - Dysphonia [Unknown]
  - Fatigue [Unknown]
  - Laryngitis [Unknown]
  - Hot flush [Unknown]
  - Visual impairment [Unknown]
  - Myalgia [Unknown]
  - Insomnia [Unknown]
  - Dizziness [Unknown]
  - Arthralgia [Unknown]
